FAERS Safety Report 7742908-5 (Version None)
Quarter: 2011Q3

REPORT INFORMATION
  Report Type: 
  Country: None (occurrence: None)
  Receive Date: 20110912
  Receipt Date: 20110829
  Transmission Date: 20111222
  Serious: Yes (Hospitalization, Other)
  Sender: FDA-Public Use
  Company Number: DE-ELI_LILLY_AND_COMPANY-DE201108008333

PATIENT
  Sex: Female

DRUGS (7)
  1. NALOXONE [Concomitant]
     Dosage: 10 MG, BID
     Route: 065
  2. CORTISONE ACETATE [Concomitant]
     Dosage: 10 MG, UNKNOWN
     Route: 065
  3. FORTEO [Suspect]
     Indication: OSTEOPOROSIS
     Dosage: UNK, QD
     Route: 058
     Dates: start: 20110113
  4. CALCIUM VIT D [Concomitant]
     Dosage: UNK, UNKNOWN
     Route: 065
  5. METHOTREXATE [Concomitant]
     Dosage: UNK, UNKNOWN
     Route: 065
  6. FOLIC ACID [Concomitant]
     Dosage: UNK, UNKNOWN
     Route: 065
  7. ANALGESICS [Concomitant]
     Dosage: UNK, UNKNOWN
     Route: 065

REACTIONS (3)
  - JOINT DISLOCATION [None]
  - HOSPITALISATION [None]
  - FEMUR FRACTURE [None]
